FAERS Safety Report 7407170-1 (Version None)
Quarter: 2011Q2

REPORT INFORMATION
  Report Type: 
  Country: None (occurrence: None)
  Receive Date: 20110411
  Receipt Date: 20110407
  Transmission Date: 20111010
  Serious: Yes (Other)
  Sender: FDA-Public Use
  Company Number: CHPA2011US05042

PATIENT
  Sex: Male

DRUGS (1)
  1. VOLTAREN [Suspect]
     Indication: OEDEMA PERIPHERAL
     Dosage: UNK, UNK
     Route: 061
     Dates: start: 20101001

REACTIONS (3)
  - FOOT OPERATION [None]
  - FOOT FRACTURE [None]
  - DRUG INEFFECTIVE FOR UNAPPROVED INDICATION [None]
